FAERS Safety Report 6198129-3 (Version None)
Quarter: 2009Q2

REPORT INFORMATION
  Report Type: 
  Country: None (occurrence: None)
  Receive Date: 20090521
  Receipt Date: 20081218
  Transmission Date: 20091009
  Serious: Yes (Hospitalization)
  Sender: FDA-Public Use
  Company Number: AU-PFIZER INC-2008101037

PATIENT
  Age: 50 Year

DRUGS (5)
  1. ZAVEDOS [Suspect]
     Indication: ACUTE MYELOID LEUKAEMIA
     Dosage: 15 MG, 1X/DAY
     Route: 042
     Dates: start: 20081007, end: 20081113
  2. CYTARABINE [Suspect]
     Indication: ACUTE MYELOID LEUKAEMIA
     Dosage: 170 MG, 1X/DAY
     Route: 042
     Dates: start: 20081007, end: 20081117
  3. ETOPOSIDE [Suspect]
     Indication: ACUTE MYELOID LEUKAEMIA
     Dosage: 125 MG, 2X/DAY
     Route: 042
     Dates: start: 20081007, end: 20081116
  4. NEULASTA [Suspect]
     Indication: PROPHYLAXIS
     Dosage: 6 MG, 1X/DAY
     Route: 058
     Dates: start: 20081007, end: 20081118
  5. AMBISOME [Concomitant]
     Dosage: ON MONDAY, WEDNESDAY AND FRIDAY
     Route: 042
     Dates: start: 20081112

REACTIONS (1)
  - FEBRILE NEUTROPENIA [None]
